FAERS Safety Report 7391592-1 (Version None)
Quarter: 2011Q2

REPORT INFORMATION
  Report Type: 
  Country: None (occurrence: None)
  Receive Date: 20110404
  Receipt Date: 20110328
  Transmission Date: 20111010
  Serious: Yes (Other)
  Sender: FDA-Public Use
  Company Number: PHHY2011FR26405

PATIENT
  Sex: Male

DRUGS (6)
  1. REQUIP [Suspect]
     Indication: PARKINSON'S DISEASE
     Route: 048
  2. STALEVO 100 [Suspect]
     Indication: PARKINSON'S DISEASE
     Dosage: UNK
     Route: 048
  3. METFORMIN [Suspect]
     Indication: TYPE 2 DIABETES MELLITUS
     Dosage: UNK
     Route: 048
  4. MANTADIX [Suspect]
     Indication: PARKINSON'S DISEASE
     Dosage: UNK
     Route: 048
  5. MODOPAR [Suspect]
     Indication: PARKINSON'S DISEASE
     Dosage: UNK
     Route: 048
  6. REQUIP [Suspect]
     Dosage: UNK
     Route: 048

REACTIONS (2)
  - SUDDEN ONSET OF SLEEP [None]
  - HYPOTONIA [None]
